FAERS Safety Report 12384564 (Version 1)
Quarter: 2016Q2

REPORT INFORMATION
  Report Type: Spontaneous
  Country: None (occurrence: NL)
  Receive Date: 20160519
  Receipt Date: 20160519
  Transmission Date: 20160815
  Serious: Yes (Disabling)
  Sender: FDA-Public Use
  Company Number: NL-MERCK KGAA-1052443

PATIENT

DRUGS (1)
  1. NOVOTHYROX [Suspect]
     Active Substance: LEVOTHYROXINE SODIUM

REACTIONS (7)
  - Arthralgia [None]
  - Weight increased [None]
  - Headache [None]
  - Infertility female [None]
  - Palpitations [None]
  - Disturbance in attention [None]
  - Fatigue [None]
